FAERS Safety Report 7910520-0 (Version None)
Quarter: 2011Q4

REPORT INFORMATION
  Report Type: 
  Country: None (occurrence: None)
  Receive Date: 20111111
  Receipt Date: 20111028
  Transmission Date: 20120403
  Serious: Yes (Hospitalization, Other)
  Sender: FDA-Public Use
  Company Number: PHHY2009JP56806

PATIENT
  Sex: Female
  Weight: 44 kg

DRUGS (17)
  1. CYCLOSPORINE [Suspect]
     Dosage: 320 MG DAILY
     Route: 048
     Dates: start: 20080111, end: 20080222
  2. CYCLOSPORINE [Suspect]
     Dosage: 300 MG DAILY
     Route: 048
     Dates: start: 20080223
  3. SANDIMMUNE [Suspect]
     Dosage: 96 MG  DAILY
     Route: 042
     Dates: start: 20070821, end: 20070822
  4. CYCLOSPORINE [Suspect]
     Dosage: 320 MG DAILY
     Route: 048
     Dates: start: 20071218, end: 20080110
  5. PREDNISOLONE [Suspect]
     Indication: LUNG TRANSPLANT
     Dosage: UNK UKN, UNK
     Route: 048
     Dates: start: 20070827
  6. SANDIMMUNE [Suspect]
     Dosage: 168 MG,  DAILY
     Route: 042
     Dates: start: 20070824, end: 20070824
  7. MYCOPHENOLATE MOFETIL (CELLCEPT) [Suspect]
     Dosage: 500 MG,  DAILY
  8. SOLU-MEDROL [Concomitant]
     Indication: LUNG TRANSPLANT
     Dosage: 50 MG, UNK
     Route: 042
     Dates: start: 20070819, end: 20070826
  9. IMURAN [Concomitant]
     Dosage: 100 MG, UNK
     Route: 048
  10. NEORAL [Suspect]
     Indication: LUNG TRANSPLANT
     Dosage: UNK UKN, UNK
     Route: 048
     Dates: start: 20070828, end: 20070901
  11. CYCLOSPORINE [Suspect]
     Indication: LUNG TRANSPLANT
     Dosage: 350 MG DAILY
     Route: 048
     Dates: start: 20070901, end: 20071217
  12. SANDIMMUNE [Suspect]
     Dosage: 132 MG, DAILY
     Route: 042
     Dates: start: 20070823, end: 20070823
  13. PREDNISOLONE [Suspect]
     Dosage: 7.5 MG, DAILY
  14. IMURAN [Concomitant]
     Indication: LUNG TRANSPLANT
     Dosage: 200 MG, UNK
     Route: 048
     Dates: start: 20070818, end: 20070826
  15. MYCOPHENOLATE MOFETIL (CELLCEPT) [Suspect]
     Indication: LUNG TRANSPLANT
     Dosage: 1500 MG,  DAILY
     Route: 048
     Dates: start: 20070827
  16. SANDIMMUNE [Suspect]
     Dosage: 144 MG,  DAILY
     Route: 042
     Dates: start: 20070825, end: 20070827
  17. SANDIMMUNE [Suspect]
     Indication: LUNG TRANSPLANT
     Dosage: 48 MG DAILY
     Route: 042
     Dates: start: 20070819, end: 20070820

REACTIONS (10)
  - ASPERGILLOSIS [None]
  - CYTOMEGALOVIRUS INFECTION [None]
  - PNEUMOTHORAX [None]
  - DYSPNOEA [None]
  - COUGH [None]
  - CARDIAC FAILURE [None]
  - ATYPICAL MYCOBACTERIAL INFECTION [None]
  - PO2 DECREASED [None]
  - PYREXIA [None]
  - LUNG TRANSPLANT REJECTION [None]
